FAERS Safety Report 9988929 (Version 2)
Quarter: 2014Q1

REPORT INFORMATION
  Report Type: Report from Study
  Country: US (occurrence: US)
  Receive Date: 20140310
  Receipt Date: 20140310
  Transmission Date: 20141002
  Serious: No
  Sender: FDA-Public Use
  Company Number: US-ABBVIE-13P-163-1112263-00

PATIENT
  Age: 53 Year
  Sex: Female

DRUGS (14)
  1. HUMIRA [Suspect]
     Indication: CROHN^S DISEASE
     Dates: start: 20130603, end: 20130701
  2. PREDNISONE [Suspect]
     Indication: CROHN^S DISEASE
     Dosage: TAPERING
  3. TRICOR [Concomitant]
     Indication: BLOOD TRIGLYCERIDES
  4. CRESTOR [Concomitant]
     Indication: BLOOD CHOLESTEROL
  5. ASPIRIN [Concomitant]
     Indication: VISUAL IMPAIRMENT
  6. EFFEXOR [Concomitant]
     Indication: DEPRESSION
  7. BUSPAR [Concomitant]
     Indication: ANXIETY
  8. SLOW-MAG [Concomitant]
     Indication: SUPPLEMENTATION THERAPY
  9. POTASSIUM [Concomitant]
     Indication: SUPPLEMENTATION THERAPY
  10. TOPROL [Concomitant]
     Indication: HEART RATE INCREASED
  11. PRILOSEC [Concomitant]
     Indication: GASTRIC ULCER
  12. VITAMIN D [Concomitant]
     Indication: SUPPLEMENTATION THERAPY
  13. SODIUM BICARBONATE [Concomitant]
     Indication: SUPPLEMENTATION THERAPY
  14. GLYBURIDE [Concomitant]
     Indication: DIABETES MELLITUS

REACTIONS (3)
  - Alopecia [Recovering/Resolving]
  - Nausea [Recovering/Resolving]
  - Vomiting [Recovering/Resolving]
